FAERS Safety Report 6565521-4 (Version None)
Quarter: 2010Q1

REPORT INFORMATION
  Report Type: 
  Country: None (occurrence: None)
  Receive Date: 20100201
  Receipt Date: 20100121
  Transmission Date: 20100710
  Serious: Yes (Hospitalization)
  Sender: FDA-Public Use
  Company Number: US-JNJFOC-20100109739

PATIENT
  Sex: Female
  Weight: 57.61 kg

DRUGS (18)
  1. REMICADE [Suspect]
     Indication: CROHN'S DISEASE
     Route: 042
  2. REMICADE [Suspect]
     Route: 042
  3. REMICADE [Suspect]
     Route: 042
  4. REMICADE [Suspect]
     Route: 042
  5. REMICADE [Suspect]
     Route: 042
  6. REMICADE [Suspect]
     Route: 042
  7. REMICADE [Suspect]
     Route: 042
  8. REMICADE [Suspect]
     Route: 042
  9. REMICADE [Suspect]
     Route: 042
  10. REMICADE [Suspect]
     Route: 042
  11. REMICADE [Suspect]
     Route: 042
  12. REMICADE [Suspect]
     Route: 042
  13. IMODIUM [Suspect]
     Indication: DRUG USE FOR UNKNOWN INDICATION
  14. MERCAPTOPURINE [Suspect]
     Indication: CROHN'S DISEASE
  15. PREVACID [Suspect]
     Indication: DRUG USE FOR UNKNOWN INDICATION
  16. TINCTURE OF OPIUM [Suspect]
     Indication: DRUG USE FOR UNKNOWN INDICATION
  17. ANTIDEPRESSANTS [Suspect]
     Indication: CROHN'S DISEASE
  18. AZATHIOPRINE [Concomitant]
     Indication: CROHN'S DISEASE

REACTIONS (1)
  - ANAEMIA [None]
